FAERS Safety Report 21999784 (Version 1)
Quarter: 2023Q1

REPORT INFORMATION
  Report Type: Spontaneous
  Country: US (occurrence: None)
  Receive Date: 20230214
  Receipt Date: 20230214
  Transmission Date: 20230417
  Serious: Yes (Hospitalization)
  Sender: FDA-Public Use
  Company Number: None

PATIENT
  Sex: Male

DRUGS (2)
  1. OPSUMIT [Suspect]
     Active Substance: MACITENTAN
     Indication: Pulmonary arterial hypertension
     Dosage: FREQUENCY : DAILY;?
     Route: 048
     Dates: start: 20200421
  2. SILDENAFIL [Suspect]
     Active Substance: SILDENAFIL

REACTIONS (4)
  - Loss of consciousness [None]
  - Chest pain [None]
  - Dyspnoea exertional [None]
  - Head injury [None]
